FAERS Safety Report 5272741-8 (Version None)
Quarter: 2007Q1

REPORT INFORMATION
  Report Type: 
  Country: None (occurrence: None)
  Receive Date: 20070322
  Receipt Date: 20070319
  Transmission Date: 20070707
  Serious: Yes (Death)
  Sender: FDA-Public Use
  Company Number: US-GLAXOSMITHKLINE-A0643062A

PATIENT
  Sex: Female

DRUGS (2)
  1. AVANDAMET [Suspect]
     Route: 048
  2. CARDIOVASCULAR MEDICATION [Concomitant]

REACTIONS (2)
  - DEATH [None]
  - OEDEMA PERIPHERAL [None]
